FAERS Safety Report 5152144-7 (Version None)
Quarter: 2006Q4

REPORT INFORMATION
  Report Type: 
  Country: None (occurrence: None)
  Receive Date: 20061116
  Receipt Date: 20061106
  Transmission Date: 20070319
  Serious: Yes (Other)
  Sender: FDA-Public Use
  Company Number: DE-BRISTOL-MYERS SQUIBB COMPANY-13575568

PATIENT
  Age: 34 Year
  Sex: Male

DRUGS (3)
  1. ABILIFY [Suspect]
     Indication: SCHIZOPHRENIA
     Dosage: 30MG 27-APR-06, 10MG 11-APR-06 TO 12-APR-06
     Route: 048
     Dates: start: 20060411
  2. TAVOR [Concomitant]
     Route: 048
     Dates: start: 20060405
  3. TRUXAL [Concomitant]
     Dosage: 150MG 24-APR-06 TO 24-APR-06
     Route: 048
     Dates: start: 20060424, end: 20060425

REACTIONS (5)
  - FATIGUE [None]
  - HYPERHIDROSIS [None]
  - HYPOTONIC-HYPORESPONSIVE EPISODE [None]
  - TREMOR [None]
  - VERTIGO [None]
